FAERS Safety Report 10355188 (Version 1)
Quarter: 2014Q3

REPORT INFORMATION
  Report Type: Spontaneous
  Country: US (occurrence: None)
  Receive Date: 20140730
  Receipt Date: 20140730
  Transmission Date: 20150326
  Serious: Yes (Death, Hospitalization)
  Sender: FDA-Public Use
  Company Number: None

PATIENT
  Age: 74 Year
  Sex: Female

DRUGS (3)
  1. DOXORUBICIN HYDROCHLORIDE. [Suspect]
     Active Substance: DOXORUBICIN HYDROCHLORIDE
     Dates: end: 20010627
  2. TAXOL [Suspect]
     Active Substance: PACLITAXEL
     Dates: end: 20010919
  3. CYCLOPHOSPHAMIDE. [Suspect]
     Active Substance: CYCLOPHOSPHAMIDE
     Dates: end: 20010627

REACTIONS (7)
  - Breast cancer metastatic [None]
  - Acute myeloid leukaemia [None]
  - Breast cancer recurrent [None]
  - Metastases to central nervous system [None]
  - Plasma cell myeloma [None]
  - Myelodysplastic syndrome [None]
  - Febrile neutropenia [None]

NARRATIVE: CASE EVENT DATE: 20131216
